FAERS Safety Report 12400188 (Version 1)
Quarter: 2016Q2

REPORT INFORMATION
  Report Type: Spontaneous
  Country: US (occurrence: None)
  Receive Date: 20160524
  Receipt Date: 20160524
  Transmission Date: 20160815
  Serious: No
  Sender: FDA-Public Use
  Company Number: None

PATIENT
  Age: 37 Year
  Sex: Male

DRUGS (1)
  1. HARVONI [Suspect]
     Active Substance: LEDIPASVIR\SOFOSBUVIR
     Indication: CHRONIC HEPATITIS C

REACTIONS (8)
  - Polydipsia [None]
  - Thirst [None]
  - Dyspnoea [None]
  - Palpitations [None]
  - Somnolence [None]
  - Asthenia [None]
  - Chromaturia [None]
  - Middle insomnia [None]

NARRATIVE: CASE EVENT DATE: 20160523
